FAERS Safety Report 12433173 (Version 1)
Quarter: 2016Q2

REPORT INFORMATION
  Report Type: Spontaneous
  Country: US (occurrence: US)
  Receive Date: 20160603
  Receipt Date: 20160603
  Transmission Date: 20160815
  Serious: Yes (Hospitalization, Other)
  Sender: FDA-Public Use
  Company Number: US-TEVA-663041USA

PATIENT
  Age: 48 Year
  Sex: Male

DRUGS (3)
  1. CLONAZEPAM. [Suspect]
     Active Substance: CLONAZEPAM
     Route: 048
  2. TRAZODONE [Suspect]
     Active Substance: TRAZODONE HYDROCHLORIDE
     Route: 048
  3. METFORMIN [Suspect]
     Active Substance: METFORMIN HYDROCHLORIDE
     Route: 048

REACTIONS (11)
  - Hypoglycaemia [Recovering/Resolving]
  - Metabolic acidosis [Recovering/Resolving]
  - Coma [Recovering/Resolving]
  - Arrhythmia [Recovering/Resolving]
  - Hypoventilation [Recovering/Resolving]
  - Hypotension [Recovering/Resolving]
  - Acute respiratory distress syndrome [Recovering/Resolving]
  - Acute kidney injury [Recovering/Resolving]
  - Haemolysis [Recovering/Resolving]
  - Acidosis [Recovering/Resolving]
  - Bradycardia [Recovering/Resolving]
